FAERS Safety Report 21518429 (Version 3)
Quarter: 2022Q4

REPORT INFORMATION
  Report Type: Spontaneous
  Country: US (occurrence: US)
  Receive Date: 20221028
  Receipt Date: 20221203
  Transmission Date: 20230113
  Serious: No
  Sender: FDA-Public Use
  Company Number: US-UNITED THERAPEUTICS-UNT-2022-021554

PATIENT
  Sex: Male
  Weight: 104.99 kg

DRUGS (12)
  1. REMODULIN [Suspect]
     Active Substance: TREPROSTINIL
     Indication: Pulmonary arterial hypertension
     Dosage: 0.047 ?G/KG (SELF-FILLED WITH 2.8 ML/CASSETTE AT PUMP RATE OF 30 MCL/HOUR), CONTINUING
     Route: 058
     Dates: start: 20220920
  2. REMODULIN [Suspect]
     Active Substance: TREPROSTINIL
     Dosage: UNK (SELF FILLED WITH 2.7 ML/CASSETTE AT PUMP RATE OF 30 MCL/HOUR), CONTINUING
     Route: 058
     Dates: start: 2022
  3. REMODULIN [Suspect]
     Active Substance: TREPROSTINIL
     Indication: Pulmonary arterial hypertension
     Dosage: UNK, CONTINUING
     Route: 041
     Dates: start: 202209, end: 202209
  4. ORENITRAM [Suspect]
     Active Substance: TREPROSTINIL
     Indication: Pulmonary arterial hypertension
     Dosage: UNK
     Route: 048
     Dates: start: 20220413, end: 202209
  5. ORENITRAM [Suspect]
     Active Substance: TREPROSTINIL
     Dosage: 10.75 MG, TID
     Route: 048
  6. ORENITRAM [Suspect]
     Active Substance: TREPROSTINIL
     Indication: Pulmonary arterial hypertension
     Dosage: UNK
     Route: 048
  7. ORENITRAM [Suspect]
     Active Substance: TREPROSTINIL
     Indication: Pulmonary arterial hypertension
     Dosage: UNK
     Route: 048
  8. ORENITRAM [Suspect]
     Active Substance: TREPROSTINIL
     Indication: Pulmonary arterial hypertension
     Route: 048
  9. ORENITRAM [Suspect]
     Active Substance: TREPROSTINIL
     Indication: Pulmonary arterial hypertension
     Dosage: UNK
     Route: 048
  10. LECITHIN\POLOXAMER 407 [Suspect]
     Active Substance: LECITHIN\POLOXAMER 407
     Indication: Infusion site pain
     Dosage: UNK
     Route: 065
     Dates: start: 2022
  11. OPSUMIT [Concomitant]
     Active Substance: MACITENTAN
     Indication: Product used for unknown indication
     Dosage: UNK
     Route: 065
  12. ADCIRCA [Concomitant]
     Active Substance: TADALAFIL
     Indication: Pulmonary arterial hypertension
     Route: 065

REACTIONS (9)
  - Infusion site haemorrhage [Unknown]
  - Product administration interrupted [Recovered/Resolved]
  - Infusion site pruritus [Unknown]
  - Infusion site pain [Unknown]
  - Therapy partial responder [Unknown]
  - Infusion site reaction [Unknown]
  - Product use issue [Unknown]
  - Device dislocation [Unknown]
  - Infusion site erythema [Unknown]

NARRATIVE: CASE EVENT DATE: 20220101
